FAERS Safety Report 5249154-8 (Version None)
Quarter: 2007Q1

REPORT INFORMATION
  Report Type: 
  Country: None (occurrence: None)
  Receive Date: 20070228
  Receipt Date: 20070220
  Transmission Date: 20070707
  Serious: Yes (Other)
  Sender: FDA-Public Use
  Company Number: PHBS2007JP03290

PATIENT

DRUGS (1)
  1. VOLTAREN [Suspect]
     Dosage: 25 MG, BID
     Route: 054

REACTIONS (2)
  - HALLUCINATION [None]
  - PSYCHIATRIC SYMPTOM [None]
